FAERS Safety Report 16399852 (Version 3)
Quarter: 2020Q2

REPORT INFORMATION
  Report Type: Spontaneous
  Country: US (occurrence: US)
  Receive Date: 20190606
  Receipt Date: 20200410
  Transmission Date: 20200713
  Serious: No
  Sender: FDA-Public Use
  Company Number: US-SA-2019SA154264

PATIENT
  Age: 69 Year
  Sex: Female

DRUGS (1)
  1. PRALUENT [Suspect]
     Active Substance: ALIROCUMAB
     Indication: HYPERCHOLESTEROLAEMIA
     Dosage: 1 ML, QOW
     Route: 058
     Dates: start: 20190516

REACTIONS (6)
  - Cough [Unknown]
  - Tinnitus [Recovering/Resolving]
  - Rhinorrhoea [Unknown]
  - Unevaluable event [Not Recovered/Not Resolved]
  - Eye pruritus [Unknown]
  - Breast mass [Unknown]

NARRATIVE: CASE EVENT DATE: 2019
